FAERS Safety Report 18045832 (Version 1)
Quarter: 2020Q3

REPORT INFORMATION
  Report Type: Spontaneous
  Country: CH (occurrence: CH)
  Receive Date: 20200721
  Receipt Date: 20200721
  Transmission Date: 20201103
  Serious: Yes (Other)
  Sender: FDA-Public Use
  Company Number: CH-BAXTER-2020BAX014317

PATIENT
  Age: 79 Year
  Sex: Female

DRUGS (13)
  1. FLUOROURACIL. [Suspect]
     Active Substance: FLUOROURACIL
     Indication: INVASIVE LOBULAR BREAST CARCINOMA
     Dosage: ADJUVANT CHEMOTHERAPY, 3 CYCLES OF FEC?100
     Route: 065
  2. ENDOXAN 1 G. TROCKENSUBSTANZ ZUR INTRAVENOSEN INFUSION [Suspect]
     Active Substance: CYCLOPHOSPHAMIDE
     Dosage: ADJUVANT CHEMOTHERAPY, 2 CYCLES OF FEC
     Route: 065
  3. IBRANCE [Suspect]
     Active Substance: PALBOCICLIB
     Indication: ASCITES
  4. FLUOROURACIL. [Suspect]
     Active Substance: FLUOROURACIL
     Dosage: ADJUVANT CHEMOTHERAPY, 2 CYCLES OF FEC
     Route: 065
  5. EPIRUBICIN [Suspect]
     Active Substance: EPIRUBICIN
     Dosage: ADJUVANT CHEMOTHERAPY, 2 CYCLES OF FEC
     Route: 065
  6. IBRANCE [Suspect]
     Active Substance: PALBOCICLIB
     Indication: DISEASE RECURRENCE
  7. IBRANCE [Suspect]
     Active Substance: PALBOCICLIB
     Indication: INVASIVE LOBULAR BREAST CARCINOMA
     Dosage: DURATION: 10 MONTHS 13 DAYS
     Route: 065
     Dates: start: 20181017, end: 20190829
  8. TAXOTERE [Suspect]
     Active Substance: DOCETAXEL
     Indication: INVASIVE LOBULAR BREAST CARCINOMA
     Dosage: 1 CYCLE
     Route: 065
  9. LETROZOLE. [Suspect]
     Active Substance: LETROZOLE
     Indication: INVASIVE LOBULAR BREAST CARCINOMA
     Dosage: ADJUVANT HORMONE THERAPY
     Route: 065
     Dates: start: 200906, end: 200909
  10. FASLODEX [Suspect]
     Active Substance: FULVESTRANT
     Indication: INVASIVE LOBULAR BREAST CARCINOMA
     Route: 065
  11. ENDOXAN 1 G. TROCKENSUBSTANZ ZUR INTRAVENOSEN INFUSION [Suspect]
     Active Substance: CYCLOPHOSPHAMIDE
     Indication: INVASIVE LOBULAR BREAST CARCINOMA
     Dosage: ADJUVANT CHEMOTHERAPY, 3 CYCLES OF FEC?100
     Route: 065
  12. EPIRUBICIN [Suspect]
     Active Substance: EPIRUBICIN
     Indication: INVASIVE LOBULAR BREAST CARCINOMA
     Dosage: ADJUVANT CHEMOTHERAPY, 3 CYCLES OF FEC?100
     Route: 065
  13. IBRANCE [Suspect]
     Active Substance: PALBOCICLIB
     Indication: PLEURAL EFFUSION

REACTIONS (9)
  - Ascites [Unknown]
  - Feeding disorder [Recovered/Resolved]
  - Fatigue [Unknown]
  - Cachexia [Unknown]
  - Obstruction gastric [Unknown]
  - Disease recurrence [Unknown]
  - Myelosuppression [Recovered/Resolved]
  - Skin toxicity [Unknown]
  - Pleural effusion [Recovering/Resolving]

NARRATIVE: CASE EVENT DATE: 201810
